FAERS Safety Report 6554835-X (Version None)
Quarter: 2010Q1

REPORT INFORMATION
  Report Type: 
  Country: None (occurrence: None)
  Receive Date: 20100127
  Receipt Date: 20100120
  Transmission Date: 20100710
  Serious: Yes (Death)
  Sender: FDA-Public Use
  Company Number: US-GILEAD-2010-0026486

PATIENT
  Sex: Male

DRUGS (6)
  1. LETAIRIS [Suspect]
     Indication: PULMONARY ARTERIAL HYPERTENSION
     Route: 048
     Dates: start: 20081201, end: 20091119
  2. LETAIRIS [Suspect]
     Route: 048
     Dates: start: 20081213
  3. REVATIO [Concomitant]
  4. ADVAIR HFA [Concomitant]
  5. PANTOPRAZOLE [Concomitant]
  6. ASPIRIN [Concomitant]

REACTIONS (1)
  - DEATH [None]
